FAERS Safety Report 23024256 (Version 7)
Quarter: 2024Q1

REPORT INFORMATION
  Report Type: Spontaneous
  Country: PT (occurrence: PT)
  Receive Date: 20231004
  Receipt Date: 20240121
  Transmission Date: 20240410
  Serious: Yes (Life-Threatening, Hospitalization, Other)
  Sender: FDA-Public Use
  Company Number: PT-I.R.I.S.-S23010638

PATIENT
  Age: 46 Year
  Sex: Male
  Weight: 87 kg

DRUGS (2)
  1. PERINDOPRIL [Suspect]
     Active Substance: PERINDOPRIL
     Indication: Hypertension
     Dosage: 5 MILLIGRAM
     Route: 065
  2. PERINDOPRIL [Suspect]
     Active Substance: PERINDOPRIL
     Indication: Hypertension
     Dosage: 5 MILLIGRAM
     Route: 065

REACTIONS (4)
  - Angioedema [Recovering/Resolving]
  - Tongue oedema [Recovered/Resolved]
  - Condition aggravated [Unknown]
  - Obstructive airways disorder [Unknown]
